FAERS Safety Report 8169112-3 (Version None)
Quarter: 2012Q1

REPORT INFORMATION
  Report Type: 
  Country: None (occurrence: None)
  Receive Date: 20120227
  Receipt Date: 20120222
  Transmission Date: 20120608
  Serious: Yes (Other)
  Sender: FDA-Public Use
  Company Number: ES-ABBOTT-11P-144-0886750-00

PATIENT
  Age: 39 Year
  Sex: Male
  Weight: 110 kg

DRUGS (2)
  1. HUMIRA [Suspect]
     Indication: PSORIASIS
     Route: 058
     Dates: start: 20110501
  2. STELARA [Suspect]
     Indication: PSORIASIS
     Route: 058
     Dates: start: 20100901, end: 20110501

REACTIONS (1)
  - ERECTILE DYSFUNCTION [None]
